FAERS Safety Report 8153957-X (Version None)
Quarter: 2012Q1

REPORT INFORMATION
  Report Type: 
  Country: None (occurrence: None)
  Receive Date: 20120221
  Receipt Date: 20120221
  Transmission Date: 20120608
  Serious: Yes (Life-Threatening, Hospitalization)
  Sender: FDA-Public Use
  Company Number: None

PATIENT
  Age: 72 Year
  Sex: Male

DRUGS (1)
  1. VELCADE [Suspect]

REACTIONS (4)
  - BLOOD CREATININE INCREASED [None]
  - RASH [None]
  - DEHYDRATION [None]
  - DYSURIA [None]
